FAERS Safety Report 7989016-6 (Version None)
Quarter: 2011Q4

REPORT INFORMATION
  Report Type: 
  Country: None (occurrence: None)
  Receive Date: 20111219
  Receipt Date: 20111215
  Transmission Date: 20120403
  Serious: Yes (Life-Threatening)
  Sender: FDA-Public Use
  Company Number: NL-GENZYME-CAMP-1001960

PATIENT
  Sex: Male
  Weight: 76 kg

DRUGS (10)
  1. FLUDARA [Suspect]
     Indication: CHRONIC LYMPHOCYTIC LEUKAEMIA
     Dosage: 80 MG, UNK
     Route: 065
     Dates: start: 20100908, end: 20100910
  2. CAMPATH [Suspect]
     Indication: CHRONIC LYMPHOCYTIC LEUKAEMIA
     Dosage: 30 MG, UNK
     Route: 065
     Dates: start: 20100907, end: 20100909
  3. CAMPATH [Suspect]
     Dosage: 30 MG, UNK
     Route: 058
     Dates: start: 20101004, end: 20101004
  4. LACTULOSE [Concomitant]
     Indication: CONSTIPATION
     Dosage: UNK
     Route: 048
     Dates: start: 20101012, end: 20101019
  5. FLUDARA [Suspect]
     Dosage: 80 MG, UNK
     Route: 048
     Dates: start: 20101004, end: 20101006
  6. CYCLOPHOSPHAMIDE [Suspect]
     Dosage: 500 MG, UNK
     Route: 048
     Dates: start: 20101004, end: 20101006
  7. FLUCONAZOLE [Concomitant]
     Indication: PRODUCT USED FOR UNKNOWN INDICATION
     Dosage: 50 MG, QD
     Route: 048
     Dates: start: 20100906, end: 20110202
  8. VALACYCLOVIR HYDROCHLORIDE [Concomitant]
     Indication: PRODUCT USED FOR UNKNOWN INDICATION
     Dosage: 500 MG, BID
     Route: 048
     Dates: start: 20100906, end: 20100918
  9. CYCLOPHOSPHAMIDE [Suspect]
     Indication: CHRONIC LYMPHOCYTIC LEUKAEMIA
     Dosage: 500 MG, UNK
     Route: 065
     Dates: start: 20100908, end: 20100910
  10. COTRIM [Concomitant]
     Indication: PRODUCT USED FOR UNKNOWN INDICATION
     Dosage: 480 MG, QD
     Route: 048
     Dates: start: 20100906, end: 20101019

REACTIONS (1)
  - IDIOPATHIC THROMBOCYTOPENIC PURPURA [None]
